FAERS Safety Report 9916418 (Version 5)
Quarter: 2014Q2

REPORT INFORMATION
  Report Type: Report from Study
  Country: JP (occurrence: JP)
  Receive Date: 20140221
  Receipt Date: 20140523
  Transmission Date: 20141212
  Serious: Yes (Other)
  Sender: FDA-Public Use
  Company Number: JP-JNJFOC-20131201509

PATIENT
  Age: 73 Year
  Sex: Male
  Weight: 62 kg

DRUGS (14)
  1. STELARA [Suspect]
     Indication: PSORIASIS
     Route: 058
     Dates: start: 20121207, end: 20121207
  2. STELARA [Suspect]
     Indication: PSORIASIS
     Route: 058
     Dates: start: 20120920, end: 20120920
  3. STELARA [Suspect]
     Indication: PSORIASIS
     Route: 058
     Dates: start: 20120403, end: 20120403
  4. STELARA [Suspect]
     Indication: PSORIASIS
     Route: 058
     Dates: start: 20120306, end: 20120306
  5. STELARA [Suspect]
     Indication: PSORIASIS
     Route: 058
     Dates: start: 20130301, end: 20130301
  6. STELARA [Suspect]
     Indication: PSORIASIS
     Route: 058
     Dates: start: 20130524, end: 20130524
  7. STELARA [Suspect]
     Indication: PSORIASIS
     Route: 058
     Dates: start: 20131115, end: 20131115
  8. STELARA [Suspect]
     Indication: PSORIASIS
     Route: 058
     Dates: start: 20140207, end: 20140207
  9. STELARA [Suspect]
     Indication: PSORIASIS
     Route: 058
     Dates: start: 20120626, end: 20120626
  10. DERMOVATE [Concomitant]
     Indication: PSORIASIS
     Route: 061
  11. FAMCICLOVIR [Concomitant]
     Indication: HERPES ZOSTER
     Route: 048
     Dates: start: 20121004, end: 20121010
  12. ARASENA-A [Concomitant]
     Indication: HERPES ZOSTER
     Route: 061
     Dates: start: 20121004, end: 20121010
  13. LOXONIN [Concomitant]
     Indication: HERPES ZOSTER
     Route: 048
     Dates: start: 20121004, end: 20121010
  14. METHYCOBAL [Concomitant]
     Indication: HERPES ZOSTER
     Route: 048
     Dates: start: 20121004, end: 20121010

REACTIONS (2)
  - Colon cancer [Recovered/Resolved]
  - Herpes zoster [Recovered/Resolved]
